FAERS Safety Report 26054164 (Version 1)
Quarter: 2025Q4

REPORT INFORMATION
  Report Type: Spontaneous
  Country: EU (occurrence: EU)
  Receive Date: 20251117
  Receipt Date: 20251117
  Transmission Date: 20260118
  Serious: Yes (Other)
  Sender: NOVARTIS
  Company Number: EU-002147023-NVSC2025NL175025

PATIENT
  Age: 53 Year
  Sex: Female

DRUGS (2)
  1. SECUKINUMAB [Suspect]
     Active Substance: SECUKINUMAB
     Indication: Hidradenitis
     Dosage: 300 MG, Q3W
     Route: 065
     Dates: start: 202405
  2. METHOTREXATE [Suspect]
     Active Substance: METHOTREXATE
     Indication: Hidradenitis
     Dosage: 10 MG
     Route: 065

REACTIONS (8)
  - Rheumatoid arthritis [Unknown]
  - Bronchiectasis [Unknown]
  - Coronary artery disease [Unknown]
  - Folliculitis [Unknown]
  - Blood immunoglobulin G decreased [Unknown]
  - Blood immunoglobulin M decreased [Unknown]
  - Asthma [Unknown]
  - Immune system disorder [Unknown]

NARRATIVE: CASE EVENT DATE: 20240101
